FAERS Safety Report 22211389 (Version 2)
Quarter: 2023Q2

REPORT INFORMATION
  Report Type: Other
  Country: KR (occurrence: KR)
  Receive Date: 20230414
  Receipt Date: 20230428
  Transmission Date: 20230722
  Serious: Yes (Death, Hospitalization)
  Sender: FDA-Public Use
  Company Number: KR-ALVOGEN-2023090684

PATIENT
  Age: 20 Year
  Sex: Male

DRUGS (2)
  1. DOXORUBICIN [Suspect]
     Active Substance: DOXORUBICIN
     Indication: Synovial sarcoma
     Dosage: EIGHT CYCLES OF DOXORUBICIN (TOTAL DOSE, 600 MG/M2)
  2. OLARATUMAB [Concomitant]
     Active Substance: OLARATUMAB
     Indication: Synovial sarcoma
     Dosage: TOTAL DOSE, 240 MG/KG

REACTIONS (3)
  - Ischaemic stroke [Unknown]
  - Cardiac failure [Fatal]
  - Cardiomyopathy [Unknown]
